FAERS Safety Report 10056780 (Version 2)
Quarter: 2016Q4

REPORT INFORMATION
  Report Type: Spontaneous
  Country: JP (occurrence: JP)
  Receive Date: 20140403
  Receipt Date: 20161031
  Transmission Date: 20170206
  Serious: Yes (Hospitalization)
  Sender: FDA-Public Use
  Company Number: PHHY2014JP037803

PATIENT
  Sex: Female

DRUGS (3)
  1. UTERON [Suspect]
     Active Substance: RITODRINE HYDROCHLORIDE
     Indication: THREATENED LABOUR
     Route: 042
  2. MAGNESIUM SULFATE. [Suspect]
     Active Substance: MAGNESIUM SULFATE
     Indication: THREATENED LABOUR
  3. BETAMETHASONE. [Suspect]
     Active Substance: BETAMETHASONE
     Indication: THREATENED LABOUR

REACTIONS (2)
  - Maternal exposure during pregnancy [Unknown]
  - Pulmonary oedema [Recovered/Resolved]

NARRATIVE: CASE EVENT DATE: 2010
